FAERS Safety Report 21825479 (Version 1)
Quarter: 2023Q1

REPORT INFORMATION
  Report Type: Spontaneous
  Country: US (occurrence: None)
  Receive Date: 20230105
  Receipt Date: 20230105
  Transmission Date: 20230417
  Serious: Yes (Life-Threatening, Hospitalization, Disabling)
  Sender: FDA-Public Use
  Company Number: None

PATIENT
  Age: 43 Year
  Sex: Male
  Weight: 68.04 kg

DRUGS (3)
  1. MAGNESIUM CITRATE [Suspect]
     Active Substance: MAGNESIUM CITRATE
     Indication: Constipation
     Dosage: OTHER QUANTITY : 1 BOTTLE;?FREQUENCY : AS NEEDED;?
     Route: 048
     Dates: start: 20220508, end: 20220508
  2. ZOLOFT [Concomitant]
     Active Substance: SERTRALINE HYDROCHLORIDE
  3. HERBAL NOS [Concomitant]
     Active Substance: HERBALS

REACTIONS (5)
  - Constipation [None]
  - Abdominal pain upper [None]
  - Recalled product administered [None]
  - Product quality issue [None]
  - Economic problem [None]

NARRATIVE: CASE EVENT DATE: 20220511
